FAERS Safety Report 11328192 (Version 3)
Quarter: 2015Q4

REPORT INFORMATION
  Report Type: Spontaneous
  Country: BG (occurrence: BG)
  Receive Date: 20150731
  Receipt Date: 20151026
  Transmission Date: 20160304
  Serious: Yes (Hospitalization, Other)
  Sender: FDA-Public Use
  Company Number: BG-ELI_LILLY_AND_COMPANY-BG201507009043

PATIENT
  Age: 54 Year
  Sex: Female
  Weight: 65 kg

DRUGS (7)
  1. HUMALOG MIX75/25 [Suspect]
     Active Substance: INSULIN LISPRO
     Indication: DIABETES MELLITUS
     Dosage: 20 IU, EACH MORNING
     Route: 058
     Dates: start: 2004, end: 20150622
  2. HUMALOG MIX75/25 [Suspect]
     Active Substance: INSULIN LISPRO
     Dosage: 16 IU, EACH EVENING
     Route: 058
     Dates: start: 2004, end: 20150622
  3. VICETIN [Concomitant]
     Indication: ISCHAEMIC STROKE
     Dosage: 10 MG, TID
     Dates: start: 20150119
  4. CONCOR [Concomitant]
     Active Substance: BISOPROLOL FUMARATE
     Indication: HYPERTENSIVE HEART DISEASE
     Dosage: 5 MG, QD
     Dates: start: 2013
  5. DIROTON [Concomitant]
     Indication: HYPERTENSIVE HEART DISEASE
     Dosage: 10 MG, QD
     Dates: start: 2013
  6. ZYLLT [Concomitant]
     Active Substance: CLOPIDOGREL BISULFATE
     Indication: ISCHAEMIC STROKE
     Dosage: 75 MG, QD
     Dates: start: 201501
  7. L-THYROXIN [Concomitant]
     Active Substance: LEVOTHYROXINE SODIUM
     Indication: HYPOTHYROIDISM
     Dosage: UNK
     Dates: start: 20150522

REACTIONS (13)
  - Blood creatinine increased [Unknown]
  - Hypoglycaemia [Recovered/Resolved with Sequelae]
  - Hemiparesis [Unknown]
  - Hypoaesthesia [Unknown]
  - Gamma-glutamyltransferase increased [Unknown]
  - Hyperreflexia [Unknown]
  - Blood glucose increased [Unknown]
  - Blood urea increased [Unknown]
  - Ischaemic stroke [Recovered/Resolved with Sequelae]
  - Blood potassium increased [Recovered/Resolved]
  - Gait disturbance [Unknown]
  - Haematocrit decreased [Unknown]
  - Low density lipoprotein decreased [Unknown]

NARRATIVE: CASE EVENT DATE: 20150622
